FAERS Safety Report 23998551 (Version 2)
Quarter: 2024Q3

REPORT INFORMATION
  Report Type: Report from Study
  Country: US (occurrence: US)
  Receive Date: 20240621
  Receipt Date: 20240819
  Transmission Date: 20241016
  Serious: Yes (Hospitalization, Other)
  Sender: ABBVIE
  Company Number: US-ABBVIE-5807951

PATIENT
  Sex: Male

DRUGS (1)
  1. HUMIRA [Suspect]
     Active Substance: ADALIMUMAB
     Indication: Crohn^s disease
     Dosage: FORM STRENGTH: 40 MILLIGRAM
     Route: 058
     Dates: start: 20220424, end: 202407

REACTIONS (5)
  - Renal replacement therapy [Unknown]
  - Umbilical hernia [Unknown]
  - Peritoneal dialysis [Unknown]
  - Nausea [Unknown]
  - Vomiting [Unknown]
